FAERS Safety Report 9747675 (Version 1)
Quarter: 2013Q4

REPORT INFORMATION
  Report Type: Spontaneous
  Country: US (occurrence: None)
  Receive Date: 20131211
  Receipt Date: 20131211
  Transmission Date: 20140711
  Serious: No
  Sender: FDA-Public Use
  Company Number: None

PATIENT
  Age: 28 Year
  Sex: Female
  Weight: 79.38 kg

DRUGS (2)
  1. PAXIL [Suspect]
     Indication: ANXIETY
     Dates: start: 20131207, end: 20131208
  2. PAXIL [Suspect]
     Indication: DEPRESSION
     Dates: start: 20131207, end: 20131208

REACTIONS (3)
  - Muscle twitching [None]
  - Tic [None]
  - Headache [None]
